FAERS Safety Report 18698493 (Version 1)
Quarter: 2021Q1

REPORT INFORMATION
  Report Type: Other
  Country: CN (occurrence: CN)
  Receive Date: 20210105
  Receipt Date: 20210105
  Transmission Date: 20210419
  Serious: Yes (Other)
  Sender: FDA-Public Use
  Company Number: CN-ROCHE-2742470

PATIENT
  Age: 64 Year
  Sex: Female

DRUGS (9)
  1. MANNITOL. [Concomitant]
     Active Substance: MANNITOL
     Indication: DEHYDRATION
     Route: 041
     Dates: start: 20190509
  2. BEVACIZUMAB. [Suspect]
     Active Substance: BEVACIZUMAB
     Dosage: DAY3
     Route: 041
     Dates: start: 20190101
  3. BEVACIZUMAB. [Suspect]
     Active Substance: BEVACIZUMAB
     Indication: ADENOSQUAMOUS CELL CARCINOMA
     Dosage: DAY1?DAY2
     Route: 042
     Dates: start: 20190101
  4. CRIZOTINIB [Suspect]
     Active Substance: CRIZOTINIB
     Indication: ADENOSQUAMOUS CELL CARCINOMA
     Route: 048
     Dates: start: 20140925
  5. ALECTINIB. [Suspect]
     Active Substance: ALECTINIB
     Indication: ADENOSQUAMOUS CELL CARCINOMA
     Route: 048
     Dates: start: 20181126
  6. ALECTINIB. [Suspect]
     Active Substance: ALECTINIB
     Route: 048
     Dates: start: 20190101
  7. FUROSEMIDE. [Concomitant]
     Active Substance: FUROSEMIDE
     Indication: DEHYDRATION
     Dates: start: 20190509
  8. POTASSIUM CHLORIDE. [Concomitant]
     Active Substance: POTASSIUM CHLORIDE
     Indication: MINERAL SUPPLEMENTATION
     Route: 048
     Dates: start: 20190501
  9. FUROSEMIDE. [Concomitant]
     Active Substance: FUROSEMIDE
     Indication: DEHYDRATION
     Route: 048
     Dates: start: 20190501

REACTIONS (1)
  - Oedema [Recovering/Resolving]
